FAERS Safety Report 9954403 (Version 1)
Quarter: 2014Q1

REPORT INFORMATION
  Report Type: Spontaneous
  Country: GB (occurrence: GB)
  Receive Date: 20140304
  Receipt Date: 20140304
  Transmission Date: 20141002
  Serious: Yes (Hospitalization)
  Sender: FDA-Public Use
  Company Number: PHFR2014GB001896

PATIENT
  Age: 44 Year
  Sex: Male

DRUGS (7)
  1. CLOZARIL [Suspect]
     Dosage: 650 MG,
     Route: 048
  2. SULPIRIDE [Concomitant]
     Dosage: 400 MG, UNK
     Route: 048
  3. SODIUM VALPROATE [Concomitant]
     Dosage: 2000 MG, UNK
     Route: 048
  4. OMEPRAZOLE [Concomitant]
     Dosage: 20 MG, UNK
     Route: 048
  5. HYOSCINE [Concomitant]
     Dosage: 300 UG, UNK
     Route: 048
  6. PROCYCLIDINE [Concomitant]
     Dosage: 10 MG, UNK
     Route: 048
  7. CITALOPRAM [Concomitant]
     Dosage: 20 MG, UNK
     Route: 048

REACTIONS (1)
  - Circulatory collapse [Recovered/Resolved]
